FAERS Safety Report 24215724 (Version 3)
Quarter: 2024Q4

REPORT INFORMATION
  Report Type: Report from Study
  Country: US (occurrence: US)
  Receive Date: 20240816
  Receipt Date: 20241014
  Transmission Date: 20250115
  Serious: Yes (Other)
  Sender: ABBVIE
  Company Number: US-ABBVIE-5878773

PATIENT
  Sex: Female

DRUGS (2)
  1. SKYRIZI [Suspect]
     Active Substance: RISANKIZUMAB-RZAA
     Indication: Crohn^s disease
     Route: 058
     Dates: start: 20230901
  2. Oxy [Concomitant]
     Indication: Product used for unknown indication
     Dosage: 18 MG, 2X DAY

REACTIONS (5)
  - Breast cancer stage IV [Not Recovered/Not Resolved]
  - Diarrhoea [Unknown]
  - Bone lesion [Unknown]
  - Metastases to bone [Unknown]
  - Bone pain [Unknown]
